FAERS Safety Report 6441841-9 (Version None)
Quarter: 2009Q4

REPORT INFORMATION
  Report Type: 
  Country: None (occurrence: None)
  Receive Date: 20091113
  Receipt Date: 20091113
  Transmission Date: 20100525
  Serious: Yes (Hospitalization)
  Sender: FDA-Public Use
  Company Number: None

PATIENT
  Sex: Female
  Weight: 81 kg

DRUGS (2)
  1. INTRON A [Suspect]
     Dosage: 540 MILLION IU
  2. INTRON A [Suspect]

REACTIONS (3)
  - DYSPNOEA [None]
  - HYPOXIA [None]
  - REFUSAL OF TREATMENT BY PATIENT [None]
